FAERS Safety Report 6104254-5 (Version None)
Quarter: 2009Q1

REPORT INFORMATION
  Report Type: 
  Country: None (occurrence: None)
  Receive Date: 20090302
  Receipt Date: 20090220
  Transmission Date: 20090719
  Serious: Yes (Hospitalization, Other)
  Sender: FDA-Public Use
  Company Number: 2008SP025058

PATIENT
  Age: 14 Year
  Sex: Male
  Weight: 42 kg

DRUGS (5)
  1. NOXAFIL [Suspect]
     Indication: CANDIDIASIS
     Dates: start: 20081104, end: 20081118
  2. DACTINOMYCIN [Suspect]
     Indication: RHABDOMYOSARCOMA
     Dosage: 500 MG; IV
     Route: 042
     Dates: start: 20081114, end: 20081118
  3. VINCRISTINE [Suspect]
     Indication: NEOPLASM MALIGNANT
     Dosage: 2 MG; IV
     Route: 042
     Dates: start: 20081114, end: 20081118
  4. CYCLOPHOSPHAMIDE [Suspect]
     Indication: URINARY TRACT INFECTION
     Dosage: 280 MG; IV
     Route: 042
     Dates: start: 20081114, end: 20081118
  5. SULFAMETHOXAZOLE AND TRIMETHOPRIM [Suspect]
     Indication: URINARY TRACT INFECTION
     Dosage: 960 MG; IV
     Route: 042
     Dates: start: 20081114, end: 20081117

REACTIONS (14)
  - DIARRHOEA [None]
  - DRUG INTERACTION [None]
  - DRUG LEVEL INCREASED [None]
  - GASTROINTESTINAL DISORDER [None]
  - GASTROINTESTINAL HAEMORRHAGE [None]
  - HYPERTENSION [None]
  - METABOLIC DISORDER [None]
  - MUCOUS MEMBRANE DISORDER [None]
  - ORAL DISORDER [None]
  - PANCYTOPENIA [None]
  - SKIN EXFOLIATION [None]
  - SKIN ULCER [None]
  - THERMAL BURN [None]
  - VOMITING [None]
